FAERS Safety Report 10737099 (Version 1)
Quarter: 2015Q1

REPORT INFORMATION
  Report Type: Spontaneous
  Country: US (occurrence: None)
  Receive Date: 20150112
  Receipt Date: 20150112
  Transmission Date: 20150721
  Serious: Yes (Life-Threatening)
  Sender: FDA-Public Use
  Company Number: 1444062

PATIENT
  Age: 75 Year
  Sex: Male
  Weight: 102.4 kg

DRUGS (8)
  1. ECONAZOLE NITRATE (ECONAZOLE NITRATE) (1 %, CUTANEOUS POWDER) [Concomitant]
  2. LORATADINE (LORATADINE) (LORATADINE) [Concomitant]
     Active Substance: LORATADINE
  3. ASPIRIN (ASPIRIN) [Concomitant]
     Active Substance: ASPIRIN
  4. ALTEPLASE (ALTEPLASE) (INFUSION, SOLUTION) [Suspect]
     Active Substance: ALTEPLASE
     Indication: CEREBROVASCULAR ACCIDENT
     Dosage: UNABLE TO OBTAIN
     Route: 040
     Dates: start: 20140220, end: 20140220
  5. FOSINOPRIL (FOSINOPRIL) [Concomitant]
  6. INDOMETHACIN (INDOMETACIN) [Concomitant]
  7. PANTOPRAZOLE (PANTOPRAZOLE) [Concomitant]
     Active Substance: PANTOPRAZOLE SODIUM
  8. SIMVASTATIN (SIMVASTATIN) [Concomitant]
     Active Substance: SIMVASTATIN

REACTIONS (1)
  - Angioedema [None]

NARRATIVE: CASE EVENT DATE: 20140220
